FAERS Safety Report 4980015-5 (Version None)
Quarter: 2006Q2

REPORT INFORMATION
  Report Type: 
  Country: None (occurrence: None)
  Receive Date: 20060421
  Receipt Date: 20060413
  Transmission Date: 20061013
  Serious: Yes (Hospitalization)
  Sender: FDA-Public Use
  Company Number: ES-MERCK-0604ESP00024

PATIENT
  Age: 6 Year
  Sex: Male

DRUGS (1)
  1. CRIXIVAN [Suspect]
     Indication: HIV TEST POSITIVE
     Route: 065

REACTIONS (2)
  - MAJOR DEPRESSION [None]
  - NEPHROLITHIASIS [None]
